FAERS Safety Report 16357465 (Version 2)
Quarter: 2019Q2

REPORT INFORMATION
  Report Type: Spontaneous
  Country: US (occurrence: US)
  Receive Date: 20190527
  Receipt Date: 20190613
  Transmission Date: 20190711
  Serious: No
  Sender: FDA-Public Use
  Company Number: US-GLAXOSMITHKLINE-US2019093773

PATIENT
  Age: 41 Year
  Sex: Female

DRUGS (1)
  1. EXCEDRIN MIGRAINE [Suspect]
     Active Substance: ACETAMINOPHEN\ASPIRIN\CAFFEINE
     Indication: MIGRAINE
     Dosage: UNK UNK, PRN
     Route: 048
     Dates: start: 20190523

REACTIONS (2)
  - Pain in extremity [Unknown]
  - Product complaint [Unknown]

NARRATIVE: CASE EVENT DATE: 20190523
